FAERS Safety Report 9476576 (Version 1)
Quarter: 2013Q3

REPORT INFORMATION
  Report Type: Report from Study
  Country: US (occurrence: US)
  Receive Date: 20130826
  Receipt Date: 20130826
  Transmission Date: 20140515
  Serious: Yes (Death)
  Sender: FDA-Public Use
  Company Number: US-ASTRAZENECA-2013SE65333

PATIENT
  Age: 42 Year
  Sex: Male

DRUGS (5)
  1. BRILINTA [Suspect]
     Indication: MYOCARDIAL INFARCTION
     Route: 048
     Dates: start: 20130614, end: 2013
  2. TOPROL XL [Suspect]
     Indication: HYPERTENSION
     Route: 048
     Dates: end: 2013
  3. LISINOPRIL [Suspect]
     Indication: HYPERTENSION
     Route: 048
  4. LANTUS INSULIN [Concomitant]
     Indication: DIABETES MELLITUS
     Route: 058
  5. LIPITOR [Concomitant]
     Indication: BLOOD CHOLESTEROL INCREASED
     Route: 048

REACTIONS (1)
  - Death [Fatal]
